FAERS Safety Report 5963098-5 (Version None)
Quarter: 2008Q4

REPORT INFORMATION
  Report Type: 
  Country: None (occurrence: None)
  Receive Date: 20081119
  Receipt Date: 20081001
  Transmission Date: 20090506
  Serious: No
  Sender: FDA-Public Use
  Company Number: WAES 0810USA00415

PATIENT
  Age: 49 Year
  Sex: Female

DRUGS (2)
  1. JANUVIA [Suspect]
     Dosage: PO
     Route: 048
  2. GLUCOPHAGE [Concomitant]

REACTIONS (1)
  - IMPAIRED GASTRIC EMPTYING [None]
